FAERS Safety Report 8800847 (Version 1)
Quarter: 2012Q4

REPORT INFORMATION
  Report Type: 
  Country: DK (occurrence: DK)
  Receive Date: 20120921
  Receipt Date: 20120921
  Transmission Date: 20130627
  Serious: Yes (Other)
  Sender: FDA-Public Use
  Company Number: DK-ARROW-2012-15286

PATIENT
  Age: 87 Year
  Sex: Male

DRUGS (10)
  1. CIPROFLOXACIN HYDROCHLORIDE [Suspect]
     Indication: PSEUDOMONAS INFECTION
     Dosage: 500 mg, bid
     Route: 048
     Dates: start: 20120717, end: 20120717
  2. CIPROFLOXACIN HYDROCHLORIDE [Suspect]
     Dosage: 250 mg, bid
     Route: 048
     Dates: start: 20120718, end: 20120719
  3. MEROPENEM [Suspect]
     Indication: PSEUDOMONAS INFECTION
     Dosage: 500 mg, bid
     Route: 042
     Dates: start: 20120716
  4. VESICARE [Concomitant]
     Indication: PRODUCT USED FOR UNKNOWN INDICATION
     Dosage: UNK
     Route: 065
  5. MAREVAN [Concomitant]
     Indication: PRODUCT USED FOR UNKNOWN INDICATION
     Dosage: UNK
     Route: 065
     Dates: start: 20120716
  6. FURIX [Concomitant]
     Indication: PRODUCT USED FOR UNKNOWN INDICATION
     Dosage: UNK
     Route: 065
  7. KALEORID [Concomitant]
     Indication: PRODUCT USED FOR UNKNOWN INDICATION
     Dosage: UNK
     Route: 065
  8. SERETIDE [Concomitant]
     Indication: PRODUCT USED FOR UNKNOWN INDICATION
     Dosage: UNK
     Route: 065
  9. VENTOLINE                          /00139501/ [Concomitant]
     Indication: PRODUCT USED FOR UNKNOWN INDICATION
     Dosage: UNK
     Route: 065
  10. ZOPICLON [Concomitant]
     Indication: PRODUCT USED FOR UNKNOWN INDICATION
     Dosage: UNK
     Route: 065

REACTIONS (5)
  - Drug eruption [Unknown]
  - Oedema peripheral [Unknown]
  - Vasculitis [Unknown]
  - Purpura [Unknown]
  - Blister [Unknown]
